FAERS Safety Report 8238814 (Version 3)
Quarter: 2012Q4

REPORT INFORMATION
  Report Type: 
  Country: US (occurrence: US)
  Receive Date: 20111110
  Receipt Date: 20120921
  Transmission Date: 20130627
  Serious: Yes (Other)
  Sender: FDA-Public Use
  Company Number: US-US-EMD SERONO, INC.-7093439

PATIENT
  Age: 43 None
  Sex: Female
  Weight: 64 kg

DRUGS (2)
  1. REBIF [Suspect]
     Indication: RELAPSING-REMITTING MULTIPLE SCLEROSIS
     Dates: start: 200511, end: 20111109
  2. TRAMADOL [Concomitant]
     Indication: BACK PAIN
     Dates: start: 20110921

REACTIONS (4)
  - Optic neuritis [Recovered/Resolved]
  - Neutralising antibodies positive [Not Recovered/Not Resolved]
  - Asthenia [Unknown]
  - Influenza like illness [Recovered/Resolved]
